FAERS Safety Report 12246876 (Version 1)
Quarter: 2016Q2

REPORT INFORMATION
  Report Type: Spontaneous
  Country: US (occurrence: US)
  Receive Date: 20160407
  Receipt Date: 20160407
  Transmission Date: 20160815
  Serious: Yes (Other)
  Sender: FDA-Public Use
  Company Number: US-MYLANLABS-2016M1014239

PATIENT

DRUGS (7)
  1. CARVEDILOL. [Suspect]
     Active Substance: CARVEDILOL
     Indication: SINUS TACHYCARDIA
     Route: 065
  2. LIDOCAINE. [Suspect]
     Active Substance: LIDOCAINE
     Indication: EPIDURAL ANAESTHESIA
     Dosage: CONC. 2%
     Route: 008
  3. PHENYLEPHRINE [Suspect]
     Active Substance: PHENYLEPHRINE\PHENYLEPHRINE HYDROCHLORIDE
     Dosage: ADDITIONAL BOLUSES (80-120 MICROG)
     Route: 008
  4. PHENYLEPHRINE [Suspect]
     Active Substance: PHENYLEPHRINE\PHENYLEPHRINE HYDROCHLORIDE
     Indication: PROPHYLAXIS
     Dosage: 20 MICROG/MIN
     Route: 008
  5. HEPARIN [Suspect]
     Active Substance: HEPARIN SODIUM
     Indication: AORTIC THROMBOSIS
     Route: 042
  6. EPINEPHRINE. [Suspect]
     Active Substance: EPINEPHRINE
     Indication: EPIDURAL ANAESTHESIA
     Dosage: 1 IN 200,000 (TOTAL VOLUME: 20ML)
     Route: 008
  7. FENTANYL. [Suspect]
     Active Substance: FENTANYL
     Indication: PRODUCT USED FOR UNKNOWN INDICATION
     Dosage: 100 MICROG
     Route: 008

REACTIONS (2)
  - Maternal exposure during pregnancy [Recovered/Resolved]
  - Hypotension [Unknown]
